FAERS Safety Report 4875932-0 (Version None)
Quarter: 2006Q1

REPORT INFORMATION
  Report Type: 
  Country: None (occurrence: None)
  Receive Date: 20060106
  Receipt Date: 20051220
  Transmission Date: 20060701
  Serious: Yes (Hospitalization, Other)
  Sender: FDA-Public Use
  Company Number: US200512003574

PATIENT
  Age: 61 Year
  Sex: Female

DRUGS (3)
  1. HUMULIN R [Suspect]
     Indication: DIABETES MELLITUS
     Dosage: 3/D, 6 U, DAILY (1/D), 4 U, EACH EVENING
     Dates: start: 19890101
  2. HUMULIN R [Suspect]
     Indication: DIABETES MELLITUS
     Dosage: 3/D, 6 U, DAILY (1/D), 4 U, EACH EVENING
     Dates: start: 19890101
  3. HUMULIN L [Suspect]
     Indication: DIABETES MELLITUS
     Dosage: 2/D, 4 U, EACH EVENING,
     Dates: start: 19890101

REACTIONS (4)
  - BLINDNESS UNILATERAL [None]
  - BLOOD GLUCOSE INCREASED [None]
  - BLOOD PRESSURE INCREASED [None]
  - RENAL FAILURE [None]
